FAERS Safety Report 5017164-1 (Version None)
Quarter: 2006Q2

REPORT INFORMATION
  Report Type: 
  Country: None (occurrence: None)
  Receive Date: 20060525
  Receipt Date: 20060504
  Transmission Date: 20061013
  Serious: Yes (Other)
  Sender: FDA-Public Use
  Company Number: US200605001043

PATIENT
  Age: 23 Year
  Sex: Male

DRUGS (1)
  1. XIGRIS [Suspect]
     Dosage: INTRAVENOUS
     Route: 042

REACTIONS (1)
  - PERICARDITIS [None]
